FAERS Safety Report 8798686 (Version 1)
Quarter: 2012Q4

REPORT INFORMATION
  Report Type: 
  Country: CA (occurrence: CA)
  Receive Date: 20120920
  Receipt Date: 20120920
  Transmission Date: 20130627
  Serious: Yes (Hospitalization, Other)
  Sender: FDA-Public Use
  Company Number: CA-ELI_LILLY_AND_COMPANY-CA201209003257

PATIENT
  Age: 89 Year
  Sex: Female

DRUGS (15)
  1. FORTEO [Suspect]
     Indication: OSTEOPOROSIS
     Dosage: 20 ug, qd
     Route: 058
     Dates: start: 20120710, end: 20120829
  2. AMLODIPINE [Concomitant]
  3. ASPIRIN [Concomitant]
  4. RAMIPRIL [Concomitant]
  5. IRON [Concomitant]
  6. ATENOLOL [Concomitant]
  7. PANTOPRAZOLE [Concomitant]
  8. CALCIUM [Concomitant]
  9. VITAMIN D [Concomitant]
  10. CELEBREX [Concomitant]
  11. ACETAMINOPHEN [Concomitant]
  12. CALCITONIN S [Concomitant]
  13. SENOKOT [Concomitant]
  14. DOCUSATE SODIUM [Concomitant]
  15. M-ESLON [Concomitant]

REACTIONS (2)
  - Hip fracture [Recovering/Resolving]
  - Fall [Recovering/Resolving]
